FAERS Safety Report 9528416 (Version 1)
Quarter: 2013Q3

REPORT INFORMATION
  Report Type: Spontaneous
  Country: AU (occurrence: AU)
  Receive Date: 20130917
  Receipt Date: 20130917
  Transmission Date: 20140515
  Serious: Yes (Hospitalization)
  Sender: FDA-Public Use
  Company Number: AU-PFIZER INC-2013261347

PATIENT
  Age: 34 Year
  Sex: Male
  Weight: 75 kg

DRUGS (4)
  1. VFEND [Suspect]
     Indication: ASPERGILLUS INFECTION
     Dosage: 300 MG, 2X/DAY
     Route: 048
  2. WARFARIN [Concomitant]
  3. ATENOLOL [Concomitant]
  4. RAMIPRIL [Concomitant]

REACTIONS (2)
  - Septic embolus [Not Recovered/Not Resolved]
  - Thromboangiitis obliterans [Not Recovered/Not Resolved]
